FAERS Safety Report 5337781-9 (Version None)
Quarter: 2007Q2

REPORT INFORMATION
  Report Type: 
  Country: None (occurrence: None)
  Receive Date: 20070308
  Receipt Date: 20070109
  Transmission Date: 20071010
  Serious: No
  Sender: FDA-Public Use
  Company Number: 2006-BP-14612BP

PATIENT
  Age: 43 Year
  Sex: Male

DRUGS (6)
  1. SPIRIVA [Suspect]
     Indication: ASTHMA
     Dosage: 18 MCG (18 MCG, 1 IN 1 D), IH
     Route: 055
     Dates: start: 20060818, end: 20061214
  2. SPIRIVA [Suspect]
     Indication: CHRONIC OBSTRUCTIVE PULMONARY DISEASE
     Dosage: 18 MCG (18 MCG, 1 IN 1 D), IH
     Route: 055
     Dates: start: 20060818, end: 20061214
  3. ADVAIR          (SERETIDE) [Concomitant]
  4. SINGULAIR [Concomitant]
  5. ALBUTEROL [Concomitant]
  6. NASONEX [Concomitant]

REACTIONS (7)
  - DEPRESSION [None]
  - DYSURIA [None]
  - IRRITABILITY [None]
  - NOCTURIA [None]
  - POLLAKIURIA [None]
  - PSYCHOTIC DISORDER [None]
  - SLEEP DISORDER [None]
